FAERS Safety Report 5168219-2 (Version None)
Quarter: 2006Q4

REPORT INFORMATION
  Report Type: 
  Country: None (occurrence: None)
  Receive Date: 20061208
  Receipt Date: 20061206
  Transmission Date: 20070319
  Serious: Yes (Disabling)
  Sender: FDA-Public Use
  Company Number: US-GLAXOSMITHKLINE-A0630626A

PATIENT
  Age: 60 Year
  Sex: Female

DRUGS (26)
  1. REQUIP [Suspect]
     Indication: RESTLESS LEGS SYNDROME
     Route: 048
  2. POTASSIUM CHLORIDE [Concomitant]
  3. ACTONEL [Concomitant]
  4. MS CONTIN [Concomitant]
  5. MIRALAX [Concomitant]
  6. VITAMIN D [Concomitant]
  7. KLONOPIN [Concomitant]
  8. CLARINEX [Concomitant]
  9. METHOTREXATE [Concomitant]
  10. LEVOTHYROXINE SODIUM [Concomitant]
  11. IMDUR [Concomitant]
  12. EVISTA [Concomitant]
  13. MIDAMOR [Concomitant]
  14. TRIAVIL [Concomitant]
  15. PLAQUENIL [Concomitant]
  16. AMITRIPTYLINE HCL [Concomitant]
  17. REGLAN [Concomitant]
  18. LASIX [Concomitant]
  19. FLEXERIL [Concomitant]
  20. DETROL LA [Concomitant]
  21. LODINE [Concomitant]
  22. NEXIUM [Concomitant]
  23. NASONEX [Concomitant]
  24. PREDNISONE TAB [Concomitant]
  25. FOLIC ACID [Concomitant]
  26. ADVAIR DISKUS 100/50 [Concomitant]

REACTIONS (2)
  - CEREBROVASCULAR ACCIDENT [None]
  - FACIAL PALSY [None]
